FAERS Safety Report 16798656 (Version 2)
Quarter: 2019Q3

REPORT INFORMATION
  Report Type: Spontaneous
  Country: US (occurrence: US)
  Receive Date: 20190912
  Receipt Date: 20190920
  Transmission Date: 20191005
  Serious: No
  Sender: FDA-Public Use
  Company Number: US-BEH-2019106106

PATIENT
  Sex: Female

DRUGS (3)
  1. HIZENTRA [Suspect]
     Active Substance: HUMAN IMMUNOGLOBULIN G
     Dosage: 8-10 GRAMS, QW
     Route: 065
  2. HIZENTRA [Suspect]
     Active Substance: HUMAN IMMUNOGLOBULIN G
     Dosage: 23 GRAM, QOW
     Route: 065
  3. BENLYSTA [Concomitant]
     Active Substance: BELIMUMAB
     Dosage: UNK

REACTIONS (2)
  - Infusion site scar [Unknown]
  - Infusion site nodule [Unknown]
